FAERS Safety Report 11923170 (Version 6)
Quarter: 2016Q1

REPORT INFORMATION
  Report Type: Report from Study
  Country: CA (occurrence: CA)
  Receive Date: 20160118
  Receipt Date: 20160229
  Transmission Date: 20160526
  Serious: Yes (Hospitalization, Other)
  Sender: FDA-Public Use
  Company Number: CA-ROCHE-1321747

PATIENT
  Age: 29 Year
  Sex: Male
  Weight: 72.7 kg

DRUGS (9)
  1. ACTEMRA [Suspect]
     Active Substance: TOCILIZUMAB
     Indication: RHEUMATOID ARTHRITIS
     Route: 042
     Dates: start: 20131021, end: 20131216
  2. METHOTREXATE [Concomitant]
     Active Substance: METHOTREXATE
  3. NAPROXEN. [Concomitant]
     Active Substance: NAPROXEN
  4. OXYCODONE [Concomitant]
     Active Substance: OXYCODONE
     Route: 065
  5. CELEXA [Concomitant]
     Active Substance: CITALOPRAM HYDROBROMIDE
  6. ACTEMRA [Suspect]
     Active Substance: TOCILIZUMAB
     Route: 042
     Dates: start: 20131216, end: 20131216
  7. TYLENOL [Concomitant]
     Active Substance: ACETAMINOPHEN
  8. PREDNISONE. [Concomitant]
     Active Substance: PREDNISONE
  9. IBUPROPHENUM [Concomitant]
     Active Substance: IBUPROFEN

REACTIONS (18)
  - Oesophageal infection [Unknown]
  - Pain [Unknown]
  - Oesophageal infection [Unknown]
  - Haemorrhage [Not Recovered/Not Resolved]
  - Migraine [Not Recovered/Not Resolved]
  - Tooth fracture [Not Recovered/Not Resolved]
  - Gingivitis [Not Recovered/Not Resolved]
  - Mouth swelling [Not Recovered/Not Resolved]
  - Chest pain [Not Recovered/Not Resolved]
  - Mobility decreased [Not Recovered/Not Resolved]
  - Toothache [Not Recovered/Not Resolved]
  - Weight increased [Unknown]
  - Gingival swelling [Not Recovered/Not Resolved]
  - Body temperature increased [Unknown]
  - Oral pain [Not Recovered/Not Resolved]
  - Tooth infection [Unknown]
  - Drug ineffective [Unknown]
  - Dysgeusia [Not Recovered/Not Resolved]

NARRATIVE: CASE EVENT DATE: 2014
